FAERS Safety Report 24570412 (Version 1)
Quarter: 2024Q4

REPORT INFORMATION
  Report Type: Spontaneous
  Country: FR (occurrence: FR)
  Receive Date: 20241031
  Receipt Date: 20241031
  Transmission Date: 20250115
  Serious: Yes (Other)
  Sender: MERCK
  Company Number: FR-009507513-2410FRA011478

PATIENT
  Sex: Male

DRUGS (1)
  1. SIVEXTRO [Suspect]
     Active Substance: TEDIZOLID PHOSPHATE
     Dosage: UNK

REACTIONS (3)
  - Neoplasm malignant [Unknown]
  - Gastrointestinal tube insertion [Unknown]
  - Off label use [Unknown]
